FAERS Safety Report 6186142-1 (Version None)
Quarter: 2009Q2

REPORT INFORMATION
  Report Type: 
  Country: None (occurrence: None)
  Receive Date: 20090507
  Receipt Date: 20090507
  Transmission Date: 20091009
  Serious: Yes (Hospitalization)
  Sender: FDA-Public Use
  Company Number: None

PATIENT
  Age: 58 Year
  Sex: Male

DRUGS (1)
  1. LISINOPRIL [Suspect]
     Indication: HYPERTENSION
     Dosage: 5 MG EVERYDAY PO
     Route: 048
     Dates: start: 20090424, end: 20090425

REACTIONS (4)
  - ANGIOEDEMA [None]
  - COUGH [None]
  - RASH [None]
  - WHEEZING [None]
